FAERS Safety Report 18990931 (Version 1)
Quarter: 2021Q1

REPORT INFORMATION
  Report Type: Report from Study
  Country: RU (occurrence: RU)
  Receive Date: 20210310
  Receipt Date: 20210310
  Transmission Date: 20210420
  Serious: Yes (Hospitalization)
  Sender: FDA-Public Use
  Company Number: RU-CELGENEUS-RUS-20201005063

PATIENT
  Age: 49 Year
  Sex: Female
  Weight: 88 kg

DRUGS (2)
  1. INTRAUTERINE DEVICE [Concomitant]
     Active Substance: INTRAUTERINE DEVICE
     Indication: CONTRACEPTION
     Route: 050
     Dates: start: 20170918
  2. OZANIMOD. [Suspect]
     Active Substance: OZANIMOD
     Indication: RELAPSING MULTIPLE SCLEROSIS
     Dosage: 1 MILLIGRAM
     Route: 048
     Dates: start: 20161027, end: 20201030

REACTIONS (4)
  - Salpingo-oophoritis [Recovered/Resolved]
  - Ovarian cyst [Recovered/Resolved]
  - Hydrosalpinx [Recovered/Resolved]
  - Adnexa uteri cyst [Recovered/Resolved]

NARRATIVE: CASE EVENT DATE: 20201016
